FAERS Safety Report 16670722 (Version 1)
Quarter: 2019Q3

REPORT INFORMATION
  Report Type: Spontaneous
  Country: US (occurrence: US)
  Receive Date: 20190805
  Receipt Date: 20190805
  Transmission Date: 20191004
  Serious: No
  Sender: FDA-Public Use
  Company Number: US-RADIUS HEALTH INC.-2019US001986

PATIENT
  Sex: Female

DRUGS (1)
  1. TYMLOS [Suspect]
     Active Substance: ABALOPARATIDE
     Indication: OSTEOPOROSIS PROPHYLAXIS
     Dosage: 80 MCG, QD
     Route: 058
     Dates: start: 20190522

REACTIONS (4)
  - Product use issue [Unknown]
  - Wrong technique in product usage process [Recovering/Resolving]
  - Injection site pain [Unknown]
  - Visual impairment [Unknown]
